FAERS Safety Report 19117469 (Version 2)
Quarter: 2021Q2

REPORT INFORMATION
  Report Type: Spontaneous
  Country: US (occurrence: US)
  Receive Date: 20210409
  Receipt Date: 20210521
  Transmission Date: 20210717
  Serious: No
  Sender: FDA-Public Use
  Company Number: US-ASTRAZENECA-2021A151094

PATIENT
  Age: 78 Year
  Sex: Male

DRUGS (2)
  1. BUDESONIDE AND FORMOTEROL AEROSOL [Suspect]
     Active Substance: BUDESONIDE\FORMOTEROL FUMARATE DIHYDRATE
     Indication: CARDIAC DISORDER
     Dosage: 160/4.5 UG, TWO PUFFS TWICE DAILY
     Route: 055
     Dates: start: 20210310
  2. BUDESONIDE AND FORMOTEROL AEROSOL [Suspect]
     Active Substance: BUDESONIDE\FORMOTEROL FUMARATE DIHYDRATE
     Indication: LUNG DISORDER
     Dosage: 160/4.5 UG, TWO PUFFS TWICE DAILY
     Route: 055
     Dates: start: 20210310

REACTIONS (4)
  - Device use issue [Unknown]
  - Amnesia [Unknown]
  - Device failure [Unknown]
  - Device information output issue [Unknown]
